FAERS Safety Report 7774747-3 (Version None)
Quarter: 2011Q3

REPORT INFORMATION
  Report Type: 
  Country: None (occurrence: None)
  Receive Date: 20110923
  Receipt Date: 20110913
  Transmission Date: 20111222
  Serious: Yes (Death)
  Sender: FDA-Public Use
  Company Number: JP-ROCHE-801336

PATIENT
  Age: 64 Year
  Sex: Female

DRUGS (5)
  1. PREDNISOLONE [Suspect]
     Route: 065
     Dates: start: 20100901
  2. PREDNISOLONE [Suspect]
     Indication: POLYARTERITIS NODOSA
     Route: 065
     Dates: end: 20100401
  3. GANCICLOVIR SODIUM [Suspect]
     Indication: CYTOMEGALOVIRUS VIRAEMIA
     Route: 065
     Dates: start: 20101001
  4. AZATHIOPRINE SODIUM [Suspect]
     Indication: POLYARTERITIS NODOSA
     Route: 065
     Dates: start: 20100801
  5. PREDNISOLONE [Suspect]
     Route: 065
     Dates: start: 20100401, end: 20100901

REACTIONS (3)
  - ASPERGILLUS TEST POSITIVE [None]
  - DISSEMINATED INTRAVASCULAR COAGULATION [None]
  - BRAIN ABSCESS [None]
